FAERS Safety Report 5774241-5 (Version None)
Quarter: 2008Q2

REPORT INFORMATION
  Report Type: 
  Country: None (occurrence: None)
  Receive Date: 20080616
  Receipt Date: 20080604
  Transmission Date: 20081010
  Serious: Yes (Other)
  Sender: FDA-Public Use
  Company Number: AU-PFIZER INC-2008049463

PATIENT
  Age: 61 Year
  Sex: Female

DRUGS (2)
  1. CHANTIX [Suspect]
     Dates: start: 20080124, end: 20080407
  2. DUCENE [Concomitant]

REACTIONS (5)
  - AGEUSIA [None]
  - ANOREXIA [None]
  - ANOSMIA [None]
  - ANXIETY [None]
  - GASTROOESOPHAGEAL REFLUX DISEASE [None]
